FAERS Safety Report 9197529 (Version 3)
Quarter: 2013Q2

REPORT INFORMATION
  Report Type: Report from Study
  Country: DE (occurrence: DE)
  Receive Date: 20130328
  Receipt Date: 20130517
  Transmission Date: 20140414
  Serious: Yes (Hospitalization)
  Sender: FDA-Public Use
  Company Number: DE-GLAXOSMITHKLINE-B0872357B

PATIENT
  Age: 47 Year
  Sex: Female
  Weight: 46 kg

DRUGS (4)
  1. LAPATINIB [Suspect]
     Indication: BREAST CANCER
     Dosage: 750MG PER DAY
     Route: 048
     Dates: start: 20121129
  2. PACLITAXEL [Suspect]
     Indication: BREAST CANCER
     Dosage: 1136MG CYCLIC
     Route: 042
     Dates: start: 20121129
  3. MYOCET [Suspect]
     Indication: BREAST CANCER
     Dosage: 284MG CYCLIC
     Route: 042
     Dates: start: 20121129
  4. HERCEPTIN [Suspect]
     Indication: BREAST CANCER
     Dosage: 270MG CYCLIC
     Route: 042
     Dates: start: 20121129

REACTIONS (1)
  - White blood cell count decreased [Recovered/Resolved]
